FAERS Safety Report 23484964 (Version 2)
Quarter: 2025Q3

REPORT INFORMATION
  Report Type: Spontaneous
  Country: EU (occurrence: EU)
  Receive Date: 20240206
  Receipt Date: 20250916
  Transmission Date: 20251020
  Serious: Yes (Other)
  Sender: SANDOZ
  Company Number: EU-SUN PHARMACEUTICAL INDUSTRIES LTD-2023R1-389025

PATIENT
  Age: 60 Year
  Sex: Male

DRUGS (30)
  1. HYDROXYZINE [Suspect]
     Active Substance: HYDROXYZINE HYDROCHLORIDE
     Indication: Bipolar disorder
     Dosage: 100 MILLIGRAM, QH
     Route: 065
  2. HYDROXYZINE [Suspect]
     Active Substance: HYDROXYZINE HYDROCHLORIDE
     Dosage: 100 MILLIGRAM, QH
     Route: 065
  3. HYDROXYZINE [Suspect]
     Active Substance: HYDROXYZINE HYDROCHLORIDE
     Dosage: 125 MILLIGRAM, QH
     Route: 065
  4. HYDROXYZINE [Suspect]
     Active Substance: HYDROXYZINE HYDROCHLORIDE
     Indication: Anxiety
     Dosage: UP TO 125 MILLIGRAM/24H
     Route: 065
  5. LAMOTRIGINE [Suspect]
     Active Substance: LAMOTRIGINE
     Indication: Bipolar disorder
     Dosage: UP TO 150 MG/24 H
     Route: 065
  6. LORAZEPAM [Suspect]
     Active Substance: LORAZEPAM
     Dosage: 2.5 MILLIGRAM, QD 2.5 MG/24H
     Route: 065
  7. LORAZEPAM [Suspect]
     Active Substance: LORAZEPAM
     Indication: Bipolar disorder
     Dosage: DOSES INCREASING TO 8 MG/24 H
     Route: 065
  8. LORAZEPAM [Suspect]
     Active Substance: LORAZEPAM
     Route: 065
  9. MIANSERIN [Suspect]
     Active Substance: MIANSERIN
     Indication: Sleep disorder
     Dosage: 30 MILLIGRAM, QD (BEFORE NIGHT)
     Route: 065
  10. PAROXETINE [Suspect]
     Active Substance: PAROXETINE
     Indication: Bipolar disorder
     Route: 065
  11. PAROXETINE [Suspect]
     Active Substance: PAROXETINE
     Indication: Depression
     Dosage: 40 MILLIGRAM, QD
     Route: 065
  12. PAROXETINE [Suspect]
     Active Substance: PAROXETINE
     Indication: Anxiety
     Route: 065
  13. PREGABALIN [Suspect]
     Active Substance: PREGABALIN
     Indication: Bipolar disorder
     Dosage: 150 MILLIGRAM, QD
     Route: 065
  14. PREGABALIN [Suspect]
     Active Substance: PREGABALIN
     Dosage: 150 MILLIGRAM, QH (150 MILLIGRAM/24HOUR)
     Route: 065
  15. PROMETHAZINE [Suspect]
     Active Substance: PROMETHAZINE HYDROCHLORIDE
     Indication: Anxiety
     Dosage: 100 MILLIGRAM, QH (100 MILLIGRAM PER 24  HOUR)
     Route: 065
  16. PROMETHAZINE [Suspect]
     Active Substance: PROMETHAZINE HYDROCHLORIDE
     Indication: Bipolar disorder
     Dosage: 100 MILLIGRAM, QH (100 MILLIGRAM PER 24  HOUR)
     Route: 065
  17. QUETIAPINE [Suspect]
     Active Substance: QUETIAPINE
     Indication: Bipolar disorder
     Dosage: 300 MILLIGRAM, QD (DOSES INCREASING TO 300 MG/24 H)
     Route: 065
  18. QUETIAPINE [Suspect]
     Active Substance: QUETIAPINE
     Dosage: 300 MILLIGRAM, QD (DOSES INCREASING TO 300 MG/24 H)
     Route: 065
  19. QUETIAPINE [Suspect]
     Active Substance: QUETIAPINE
     Indication: Anxiety
     Route: 065
  20. REBOXETINE [Suspect]
     Active Substance: REBOXETINE
     Route: 065
  21. REBOXETINE [Suspect]
     Active Substance: REBOXETINE
     Route: 065
  22. REBOXETINE [Suspect]
     Active Substance: REBOXETINE
     Indication: Bipolar disorder
     Route: 065
  23. REBOXETINE [Suspect]
     Active Substance: REBOXETINE
     Route: 065
  24. TRIGLYCERIDES,UNSPECIFIED LENGTH [Suspect]
     Active Substance: TRIGLYCERIDES,UNSPECIFIED LENGTH
     Indication: Bipolar disorder
     Route: 065
  25. VENLAFAXINE [Suspect]
     Active Substance: VENLAFAXINE HYDROCHLORIDE
     Indication: Bipolar disorder
     Dosage: 150 MILLIGRAM, QD (75-150MG/24 HOUR)
     Route: 065
  26. VENLAFAXINE [Suspect]
     Active Substance: VENLAFAXINE HYDROCHLORIDE
     Dosage: 300 MILLIGRAM, QD (300 MILLIGRAM/24 HOUR)
     Route: 065
  27. VENLAFAXINE [Suspect]
     Active Substance: VENLAFAXINE HYDROCHLORIDE
     Dosage: 75 MILLIGRAM, QD (75-150MG/24 HOUR)
     Route: 065
  28. ZOLPIDEM [Suspect]
     Active Substance: ZOLPIDEM TARTRATE
     Indication: Bipolar disorder
     Dosage: 10 MILLIGRAM, QD (10 MG AT NIGHT )
     Route: 065
  29. LITHIUM CARBONATE [Concomitant]
     Active Substance: LITHIUM CARBONATE
     Indication: Bipolar disorder
     Route: 065
  30. LITHIUM CARBONATE [Concomitant]
     Active Substance: LITHIUM CARBONATE
     Dosage: 1500 MILLIGRAM, QD
     Route: 065

REACTIONS (10)
  - Drug dependence [Recovered/Resolved]
  - Therapeutic product effect incomplete [Unknown]
  - Depressed mood [Recovering/Resolving]
  - Hepatic enzyme increased [Unknown]
  - Anxiety [Recovering/Resolving]
  - Sleep disorder [Recovering/Resolving]
  - Withdrawal syndrome [Recovered/Resolved]
  - Fear [Recovering/Resolving]
  - Therapeutic response decreased [Unknown]
  - Off label use [Unknown]
